FAERS Safety Report 8449487-8 (Version None)
Quarter: 2012Q2

REPORT INFORMATION
  Report Type: 
  Country: None (occurrence: None)
  Receive Date: 20120619
  Receipt Date: 20120611
  Transmission Date: 20120825
  Serious: Yes (Other)
  Sender: FDA-Public Use
  Company Number: US-MERCK-1206USA01887

PATIENT
  Age: 87 Year
  Sex: Female

DRUGS (1)
  1. COSOPT [Suspect]
     Indication: GLAUCOMA
     Route: 047
     Dates: start: 20100101

REACTIONS (2)
  - VISION BLURRED [None]
  - ADVERSE EVENT [None]
